FAERS Safety Report 24604153 (Version 2)
Quarter: 2025Q1

REPORT INFORMATION
  Report Type: Spontaneous
  Country: IE (occurrence: IE)
  Receive Date: 20241111
  Receipt Date: 20250108
  Transmission Date: 20250409
  Serious: Yes (Other)
  Sender: PFIZER
  Company Number: IE-PFIZER INC-202400295685

PATIENT
  Age: 16 Year
  Sex: Female

DRUGS (1)
  1. GENOTROPIN [Suspect]
     Active Substance: SOMATROPIN

REACTIONS (7)
  - Body temperature decreased [Unknown]
  - Accident [Unknown]
  - Disturbance in attention [Unknown]
  - Arthralgia [Unknown]
  - Nausea [Unknown]
  - Abdominal pain upper [Unknown]
  - Insomnia [Unknown]
